FAERS Safety Report 6492905-5 (Version None)
Quarter: 2009Q4

REPORT INFORMATION
  Report Type: 
  Country: None (occurrence: None)
  Receive Date: 20091214
  Receipt Date: 20091203
  Transmission Date: 20100525
  Serious: Yes (Other)
  Sender: FDA-Public Use
  Company Number: PHHY2009DE54657

PATIENT
  Sex: Female

DRUGS (4)
  1. RASILEZ [Suspect]
     Indication: HYPERTENSION
     Dosage: 2 DF, QD (1-0-1 DF/DAY)
     Route: 048
     Dates: start: 20091101, end: 20091203
  2. DIOVAN [Suspect]
     Indication: HYPERTENSION
     Dosage: 0.5 DF, QD (0-0.5-0 DF/DAY)
     Route: 048
     Dates: start: 20091101, end: 20091203
  3. DIOVAN [Suspect]
     Dosage: 1 DF, QD
     Route: 048
     Dates: start: 20091204
  4. TORSEMIDE [Concomitant]
     Dosage: UNK

REACTIONS (6)
  - BACK PAIN [None]
  - EAR PAIN [None]
  - FLUID RETENTION [None]
  - OCULAR HYPERAEMIA [None]
  - SKIN SWELLING [None]
  - WEIGHT INCREASED [None]
